FAERS Safety Report 7637853-X (Version None)
Quarter: 2011Q3

REPORT INFORMATION
  Report Type: 
  Country: None (occurrence: None)
  Receive Date: 20110720
  Receipt Date: 20110709
  Transmission Date: 20111222
  Serious: Yes (Death)
  Sender: FDA-Public Use
  Company Number: UTC-008490

PATIENT
  Age: 67 Year
  Sex: Female

DRUGS (8)
  1. REVATIO [Concomitant]
  2. REVATIO [Concomitant]
  3. TRACLEER [Concomitant]
  4. DIURETICS (DIURETICS) [Concomitant]
     Indication: PAIN
     Dates: start: 20101129
  5. DIURETICS (DIURETICS) [Concomitant]
     Indication: SYSTEMIC SCLEROSIS
     Dates: start: 20101129
  6. REMODULIN [Suspect]
     Indication: PAIN
     Dosage: 50.4 UG/KG (0.035 UG/KG, 1 IN 1  MIN), INTRAVENOUS
     Route: 042
     Dates: start: 20101129
  7. DIURETICS (DIURETICS) [Concomitant]
  8. TRACLEER [Concomitant]

REACTIONS (1)
  - DEATH [None]
